FAERS Safety Report 25019050 (Version 1)
Quarter: 2025Q1

REPORT INFORMATION
  Report Type: Spontaneous
  Country: GB (occurrence: GB)
  Receive Date: 20250227
  Receipt Date: 20250227
  Transmission Date: 20250408
  Serious: Yes (Other)
  Sender: MERZ
  Company Number: GB-Merz Pharmaceuticals GmbH-2025020000113

PATIENT

DRUGS (11)
  1. BOCOUTURE [Suspect]
     Active Substance: BOTULINUM TOXIN TYPE A
     Indication: Product used for unknown indication
  2. BOCOUTURE [Suspect]
     Active Substance: BOTULINUM TOXIN TYPE A
  3. BOCOUTURE [Suspect]
     Active Substance: BOTULINUM TOXIN TYPE A
  4. BOTOX [Concomitant]
     Active Substance: ONABOTULINUMTOXINA
  5. BOTOX [Concomitant]
     Active Substance: ONABOTULINUMTOXINA
  6. BOTOX [Concomitant]
     Active Substance: ONABOTULINUMTOXINA
  7. BOTOX [Concomitant]
     Active Substance: ONABOTULINUMTOXINA
  8. THYROXINE [Concomitant]
     Active Substance: LEVOTHYROXINE
     Indication: Hypothyroidism
  9. SERTRALINE [Concomitant]
     Active Substance: SERTRALINE HYDROCHLORIDE
     Indication: Depressed mood
  10. SERTRALINE [Concomitant]
     Active Substance: SERTRALINE HYDROCHLORIDE
     Indication: Stress
  11. IBUPROFEN [Concomitant]
     Active Substance: IBUPROFEN

REACTIONS (6)
  - Mycobacterial infection [Unknown]
  - Haematoma [Not Recovered/Not Resolved]
  - Skin lesion [Unknown]
  - Drug ineffective [Not Recovered/Not Resolved]
  - Injection site haemorrhage [Unknown]
  - Suspected counterfeit product [Unknown]
